FAERS Safety Report 11972058 (Version 2)
Quarter: 2016Q1

REPORT INFORMATION
  Report Type: Spontaneous
  Country: DE (occurrence: DE)
  Receive Date: 20160128
  Receipt Date: 20160222
  Transmission Date: 20160526
  Serious: Yes (Hospitalization)
  Sender: FDA-Public Use
  Company Number: PHHY2016DE005959

PATIENT
  Age: 13 Year
  Sex: Female
  Weight: 58 kg

DRUGS (6)
  1. RITALIN LA [Suspect]
     Active Substance: METHYLPHENIDATE HYDROCHLORIDE
     Indication: ATTENTION DEFICIT/HYPERACTIVITY DISORDER
     Dosage: 40 MG, QD
     Route: 065
     Dates: start: 20160111, end: 20160112
  2. VIGANTOLETTEN [Concomitant]
     Active Substance: CHOLECALCIFEROL
     Indication: VITAMIN D DEFICIENCY
     Dosage: 1 DF, QD (1-0-0)
     Route: 065
  3. AMBROXOL [Concomitant]
     Active Substance: AMBROXOL
     Indication: NASOPHARYNGITIS
     Dosage: 1 DF, QD
     Route: 065
     Dates: start: 20160111, end: 20160112
  4. DAOSIN [Concomitant]
     Indication: HISTAMINE INTOLERANCE
     Dosage: 1 DF, BID (1-0-1)
     Route: 065
  5. PROSPAN [Concomitant]
     Active Substance: IVY EXTRACT
     Indication: NASOPHARYNGITIS
     Dosage: UNK, PRN (AS NEEDED)
     Route: 065
     Dates: start: 20160108, end: 20160110
  6. SINUPRET [Concomitant]
     Active Substance: HERBALS
     Indication: NASOPHARYNGITIS
     Dosage: 1 DF, UNK
     Route: 065
     Dates: start: 20160109, end: 20160111

REACTIONS (2)
  - Neurological symptom [Recovered/Resolved]
  - Migraine with aura [Recovered/Resolved]

NARRATIVE: CASE EVENT DATE: 20160112
